FAERS Safety Report 6104980-8 (Version None)
Quarter: 2009Q1

REPORT INFORMATION
  Report Type: 
  Country: None (occurrence: None)
  Receive Date: 20090304
  Receipt Date: 20090304
  Transmission Date: 20090719
  Serious: Yes (Hospitalization)
  Sender: FDA-Public Use
  Company Number: None

PATIENT
  Sex: Female
  Weight: 70 kg

DRUGS (2)
  1. TAXOL [Suspect]
     Dosage: 143 MG
     Dates: end: 20090212
  2. HERCEPTIN [Suspect]
     Dosage: 143 MG
     Dates: end: 20090212

REACTIONS (6)
  - GOITRE [None]
  - LUNG INFILTRATION [None]
  - LYMPHADENOPATHY MEDIASTINAL [None]
  - PULMONARY GRANULOMA [None]
  - PULMONARY SARCOIDOSIS [None]
  - PYREXIA [None]
